FAERS Safety Report 17605350 (Version 1)
Quarter: 2020Q1

REPORT INFORMATION
  Report Type: Spontaneous
  Country: SE (occurrence: SE)
  Receive Date: 20200331
  Receipt Date: 20200331
  Transmission Date: 20200409
  Serious: Yes (Other)
  Sender: FDA-Public Use
  Company Number: SE-TEVA-2020-SE-1216680

PATIENT
  Sex: Male

DRUGS (1)
  1. MIRTAZAPIN ACTAVIS [Suspect]
     Active Substance: MIRTAZAPINE
     Route: 065
     Dates: end: 20181201

REACTIONS (1)
  - Hairy cell leukaemia [Unknown]

NARRATIVE: CASE EVENT DATE: 2018
